FAERS Safety Report 5207614-X (Version None)
Quarter: 2007Q1

REPORT INFORMATION
  Report Type: 
  Country: None (occurrence: None)
  Receive Date: 20070112
  Receipt Date: 20070104
  Transmission Date: 20070707
  Serious: Yes (Congenital Anomaly, Other)
  Sender: FDA-Public Use
  Company Number: FR-PFIZER INC-2002060495

PATIENT
  Sex: Male

DRUGS (5)
  1. VIRACEPT [Suspect]
     Indication: HIV INFECTION
     Route: 064
  2. COMBIVIR [Suspect]
     Indication: HIV INFECTION
     Route: 064
  3. RETROVIR [Suspect]
     Indication: HIV INFECTION
     Route: 064
     Dates: start: 20020711, end: 20020711
  4. RETROVIR [Suspect]
  5. BACTRIM [Concomitant]

REACTIONS (8)
  - ANAEMIA MACROCYTIC [None]
  - DRUG EXPOSURE DURING PREGNANCY [None]
  - LABORATORY TEST ABNORMAL [None]
  - NEUTROPENIA [None]
  - PLATELET COUNT INCREASED [None]
  - SKULL MALFORMATION [None]
  - TALIPES [None]
  - VISION BLURRED [None]
